FAERS Safety Report 23671403 (Version 2)
Quarter: 2024Q4

REPORT INFORMATION
  Report Type: Spontaneous
  Country: CA (occurrence: CA)
  Receive Date: 20240326
  Receipt Date: 20241010
  Transmission Date: 20250114
  Serious: Yes (Other)
  Sender: CELLTRION
  Company Number: CA-CELLTRION INC.-2024CA007039

PATIENT

DRUGS (1)
  1. RITUXIMAB [Suspect]
     Active Substance: RITUXIMAB
     Indication: Granulomatosis with polyangiitis
     Dosage: 500.0 MILLIGRAM
     Route: 042

REACTIONS (13)
  - Feeling abnormal [Recovering/Resolving]
  - Bronchial disorder [Recovering/Resolving]
  - Paranasal sinus discomfort [Recovering/Resolving]
  - Tracheal disorder [Recovering/Resolving]
  - Oropharyngeal pain [Recovering/Resolving]
  - Productive cough [Recovering/Resolving]
  - Ear pain [Recovering/Resolving]
  - Illness [Recovering/Resolving]
  - Chills [Recovering/Resolving]
  - Headache [Recovering/Resolving]
  - Infection [Recovering/Resolving]
  - Pneumonia [Recovering/Resolving]
  - Inappropriate schedule of product administration [Recovering/Resolving]
